FAERS Safety Report 19954592 (Version 1)
Quarter: 2021Q4

REPORT INFORMATION
  Report Type: Spontaneous
  Country: DE (occurrence: DE)
  Receive Date: 20211014
  Receipt Date: 20211014
  Transmission Date: 20220304
  Serious: Yes (Hospitalization)
  Sender: FDA-Public Use
  Company Number: DE-ADRED-06748-01

PATIENT
  Age: 39 Year
  Sex: Female
  Weight: 46 kg

DRUGS (1)
  1. IBUPROFEN [Suspect]
     Active Substance: IBUPROFEN
     Indication: Back pain
     Dosage: DEMAND, TABLETS
     Route: 048

REACTIONS (3)
  - Blood creatinine increased [Unknown]
  - Renal impairment [Unknown]
  - Medication error [Unknown]
